APPROVED DRUG PRODUCT: LORAZEPAM
Active Ingredient: LORAZEPAM
Strength: 1MG
Dosage Form/Route: TABLET;ORAL
Application: A077657 | Product #002
Applicant: RISING PHARMA HOLDING INC
Approved: Mar 16, 2006 | RLD: No | RS: No | Type: DISCN